FAERS Safety Report 16627511 (Version 3)
Quarter: 2022Q1

REPORT INFORMATION
  Report Type: Spontaneous
  Country: HU (occurrence: HU)
  Receive Date: 20190724
  Receipt Date: 20220330
  Transmission Date: 20220424
  Serious: Yes (Death, Hospitalization, Other)
  Sender: FDA-Public Use
  Company Number: HU-NOVPHSZ-PHHY2019HU156893

PATIENT
  Age: 12 Year
  Sex: Male

DRUGS (8)
  1. CYTARABINE [Suspect]
     Active Substance: CYTARABINE
     Indication: T-cell type acute leukaemia
     Dosage: UNK, BID
     Route: 037
  2. CYTARABINE [Suspect]
     Active Substance: CYTARABINE
     Dosage: UNK
     Route: 065
  3. IDARUBICIN HYDROCHLORIDE [Suspect]
     Active Substance: IDARUBICIN HYDROCHLORIDE
     Indication: T-cell type acute leukaemia
     Route: 065
  4. DAUNORUBICIN HYDROCHLORIDE [Suspect]
     Active Substance: DAUNORUBICIN HYDROCHLORIDE
     Indication: T-cell type acute leukaemia
     Route: 065
  5. METHOTREXATE [Suspect]
     Active Substance: METHOTREXATE
     Indication: T-cell type acute leukaemia
     Route: 065
  6. METHOTREXATE [Suspect]
     Active Substance: METHOTREXATE
     Dosage: UNK, BID
     Route: 037
  7. PREDNISOLONE [Suspect]
     Active Substance: PREDNISOLONE
     Indication: T-cell type acute leukaemia
     Dosage: UNK, BID
     Route: 037
  8. PREDNISOLONE [Suspect]
     Active Substance: PREDNISOLONE
     Route: 065

REACTIONS (7)
  - Recurrent cancer [Fatal]
  - Altered state of consciousness [Fatal]
  - Condition aggravated [Fatal]
  - Facial paresis [Fatal]
  - T-cell type acute leukaemia [Fatal]
  - Pancytopenia [Fatal]
  - Infection [Fatal]
